FAERS Safety Report 8094188-1 (Version None)
Quarter: 2012Q1

REPORT INFORMATION
  Report Type: 
  Country: None (occurrence: None)
  Receive Date: 20120130
  Receipt Date: 20120130
  Transmission Date: 20120608
  Serious: Yes (Life-Threatening, Hospitalization)
  Sender: FDA-Public Use
  Company Number: None

PATIENT
  Age: 70 Year
  Sex: Female
  Weight: 63.502 kg

DRUGS (1)
  1. RECLAST [Suspect]

REACTIONS (7)
  - INFLUENZA LIKE ILLNESS [None]
  - GASTROOESOPHAGEAL REFLUX DISEASE [None]
  - WEIGHT DECREASED [None]
  - RENAL FAILURE ACUTE [None]
  - ARTHRALGIA [None]
  - MYALGIA [None]
  - DEHYDRATION [None]
